FAERS Safety Report 22389452 (Version 1)
Quarter: 2023Q2

REPORT INFORMATION
  Report Type: Spontaneous
  Country: US (occurrence: None)
  Receive Date: 20230530
  Receipt Date: 20230530
  Transmission Date: 20230722
  Serious: No
  Sender: FDA-Public Use
  Company Number: None

PATIENT
  Sex: Female

DRUGS (10)
  1. SUNITINIB MALATE [Suspect]
     Active Substance: SUNITINIB MALATE
     Indication: Gastrointestinal stromal tumour
     Dosage: FREQUENCY : DAILY;?
     Route: 048
     Dates: start: 202211, end: 20230530
  2. PROTONIX [Concomitant]
     Active Substance: PANTOPRAZOLE SODIUM
  3. MIRALAX [Concomitant]
     Active Substance: POLYETHYLENE GLYCOL 3350
  4. STOOL SOFTENER (DOCUSATE) [Concomitant]
     Active Substance: DOCUSATE
  5. SUPER CALCIUM [Concomitant]
  6. GAS-X [Concomitant]
     Active Substance: DIMETHICONE
  7. IMATINIB [Concomitant]
     Active Substance: IMATINIB
  8. LOW-OGESTREL [Concomitant]
     Active Substance: ETHINYL ESTRADIOL\NORGESTREL
  9. PREDNISONE [Concomitant]
     Active Substance: PREDNISONE
  10. MULTIVITAMIN CHILDRENS [Concomitant]

REACTIONS (2)
  - Gastrointestinal stromal tumour [None]
  - Neoplasm progression [None]
